FAERS Safety Report 5691505-4 (Version None)
Quarter: 2008Q2

REPORT INFORMATION
  Report Type: 
  Country: None (occurrence: None)
  Receive Date: 20080401
  Receipt Date: 20080317
  Transmission Date: 20081010
  Serious: Yes (Hospitalization, Other)
  Sender: FDA-Public Use
  Company Number: APP200800207

PATIENT
  Age: 56 Year
  Sex: Male
  Weight: 70 kg

DRUGS (5)
  1. HEPARIN SODIUM INJECTION [Suspect]
     Indication: THROMBOSIS PROPHYLAXIS
     Dosage: 2 ML, 3 X WEEK, HEMODIALYSIS
     Dates: start: 20071201
  2. HEPARIN SODIUM [Suspect]
     Indication: THROMBOSIS PROPHYLAXIS
     Dosage: 2 ML, 3 X WEEK, HEMODIALYSIS
     Dates: start: 20070801, end: 20071201
  3. DIGITEX  (DIGOXIN) [Concomitant]
  4. PLAVIX [Concomitant]
  5. ASPIRIN [Concomitant]

REACTIONS (10)
  - CHEST PAIN [None]
  - DYSPNOEA [None]
  - HEADACHE [None]
  - HYPOTENSION [None]
  - INSOMNIA [None]
  - ISCHAEMIC STROKE [None]
  - NAUSEA [None]
  - OEDEMA PERIPHERAL [None]
  - STAPHYLOCOCCAL BACTERAEMIA [None]
  - THIRST [None]
